FAERS Safety Report 12589460 (Version 1)
Quarter: 2016Q3

REPORT INFORMATION
  Report Type: Spontaneous
  Country: CN (occurrence: CN)
  Receive Date: 20160725
  Receipt Date: 20160725
  Transmission Date: 20161109
  Serious: Yes (Death, Other)
  Sender: FDA-Public Use
  Company Number: CN-PFIZER INC-2016355268

PATIENT
  Age: 88 Year
  Sex: Female

DRUGS (5)
  1. MEROPENEM. [Concomitant]
     Active Substance: MEROPENEM
     Indication: LUNG INFECTION
     Dosage: 1 G, 2X/DAY
     Route: 041
     Dates: start: 20151229, end: 20160104
  2. YINUOSU [Concomitant]
     Indication: LUNG INFECTION
     Dosage: 30 MG, 3X/DAY
     Route: 041
     Dates: start: 20151230, end: 20160105
  3. AMINOPHYLLINE. [Concomitant]
     Active Substance: AMINOPHYLLINE
     Indication: LUNG INFECTION
     Dosage: 0.5 G, 1X/DAY
     Route: 041
     Dates: start: 20151230, end: 20160105
  4. DIFLUCAN [Suspect]
     Active Substance: FLUCONAZOLE
     Indication: LUNG INFECTION
     Dosage: 0.2 G, 2X/DAY
     Route: 041
     Dates: start: 20151230, end: 20160105
  5. VANCOCIN [Suspect]
     Active Substance: VANCOMYCIN HYDROCHLORIDE
     Indication: LUNG INFECTION
     Dosage: 0.5 G, 2X/DAY
     Route: 041
     Dates: start: 20151230, end: 20160104

REACTIONS (1)
  - Renal impairment [Fatal]

NARRATIVE: CASE EVENT DATE: 20151231
